FAERS Safety Report 14558726 (Version 2)
Quarter: 2018Q1

REPORT INFORMATION
  Report Type: Spontaneous
  Country: DE (occurrence: DE)
  Receive Date: 20180221
  Receipt Date: 20180327
  Transmission Date: 20180509
  Serious: Yes (Hospitalization)
  Sender: FDA-Public Use
  Company Number: DE-BAUSCH-BL-2018-004819

PATIENT
  Age: 57 Year
  Sex: Male

DRUGS (3)
  1. METRONIDAZOLE. [Suspect]
     Active Substance: METRONIDAZOLE
     Indication: CROHN^S DISEASE
     Route: 065
     Dates: start: 20180118, end: 20180129
  2. ENTYVIO [Suspect]
     Active Substance: VEDOLIZUMAB
     Indication: CROHN^S DISEASE
     Route: 042
     Dates: start: 20171206
  3. BUDENOFALK [Suspect]
     Active Substance: BUDESONIDE
     Indication: CROHN^S DISEASE
     Route: 065
     Dates: start: 20171020, end: 20180116

REACTIONS (16)
  - Muscle spasms [Recovered/Resolved]
  - Nausea [Recovered/Resolved]
  - Nervous system disorder [Recovered/Resolved]
  - Hypoacusis [Recovered/Resolved]
  - Diarrhoea [Recovered/Resolved]
  - Blood glucose increased [Recovered/Resolved]
  - Feeling hot [Recovered/Resolved]
  - Head discomfort [Recovered/Resolved]
  - Ear disorder [Recovered/Resolved]
  - Paraesthesia [Recovered/Resolved]
  - Dizziness [Recovered/Resolved]
  - Dysaesthesia [Recovered/Resolved]
  - Dysphonia [Recovered/Resolved]
  - Parosmia [Recovered/Resolved]
  - Cardiovascular disorder [Recovered/Resolved]
  - Hypertension [Recovered/Resolved]

NARRATIVE: CASE EVENT DATE: 201711
